FAERS Safety Report 16333566 (Version 5)
Quarter: 2019Q4

REPORT INFORMATION
  Report Type: Report from Study
  Country: US (occurrence: US)
  Receive Date: 20190520
  Receipt Date: 20191003
  Transmission Date: 20200122
  Serious: Yes (Hospitalization)
  Sender: FDA-Public Use
  Company Number: US-ACTELION-A-US2016-146656

PATIENT
  Age: 37 Year
  Sex: Female

DRUGS (11)
  1. SILDENAFIL. [Concomitant]
     Active Substance: SILDENAFIL
  2. DIGOXIN. [Concomitant]
     Active Substance: DIGOXIN
  3. ALLOPURINOL. [Concomitant]
     Active Substance: ALLOPURINOL
  4. OPSUMIT [Suspect]
     Active Substance: MACITENTAN
     Dosage: 10 MG, QD
     Route: 048
     Dates: start: 20161013
  5. WARFARIN [Concomitant]
     Active Substance: WARFARIN
  6. OPSUMIT [Suspect]
     Active Substance: MACITENTAN
     Indication: PULMONARY ARTERIAL HYPERTENSION
     Dosage: 10 MG, QD
     Route: 048
     Dates: start: 20181121
  7. POTASSIUM [Concomitant]
     Active Substance: POTASSIUM
  8. PROSTACYCLIN [Concomitant]
     Active Substance: EPOPROSTENOL
     Route: 042
  9. OMEPRAZOLE. [Concomitant]
     Active Substance: OMEPRAZOLE
  10. REMODULIN [Concomitant]
     Active Substance: TREPROSTINIL
  11. ORENITRAM [Concomitant]
     Active Substance: TREPROSTINIL

REACTIONS (11)
  - Device leakage [Unknown]
  - Headache [Unknown]
  - Dyspnoea [Unknown]
  - Drug level increased [Recovered/Resolved]
  - Emergency care [Unknown]
  - Abdominal pain upper [Not Recovered/Not Resolved]
  - Hospitalisation [Recovered/Resolved]
  - Diarrhoea [Unknown]
  - Dyspnoea exertional [Recovered/Resolved]
  - Cyanosis [Unknown]
  - Skin discolouration [Unknown]

NARRATIVE: CASE EVENT DATE: 20190228
